FAERS Safety Report 16232609 (Version 1)
Quarter: 2019Q2

REPORT INFORMATION
  Report Type: Spontaneous
  Country: PT (occurrence: PT)
  Receive Date: 20190424
  Receipt Date: 20190424
  Transmission Date: 20190711
  Serious: Yes (Other)
  Sender: FDA-Public Use
  Company Number: PT-GLAXOSMITHKLINE-PT2019071436

PATIENT
  Age: 72 Year
  Sex: Female

DRUGS (4)
  1. RANITIDINE. [Suspect]
     Active Substance: RANITIDINE
     Indication: SURGERY
     Dosage: UNK
     Route: 042
     Dates: start: 201608
  2. LORAZEPAM. [Concomitant]
     Active Substance: LORAZEPAM
     Indication: SURGERY
     Dosage: UNK
     Route: 065
     Dates: start: 201608
  3. METOCLOPRAMIDE. [Concomitant]
     Active Substance: METOCLOPRAMIDE
     Indication: SURGERY
     Dosage: UNK
     Route: 065
     Dates: start: 201608
  4. CEFAZOLIN [Concomitant]
     Active Substance: CEFAZOLIN
     Indication: SURGERY
     Dosage: UNK
     Route: 065
     Dates: start: 201608

REACTIONS (6)
  - Oxygen saturation decreased [Recovered/Resolved]
  - Malaise [Recovered/Resolved]
  - Dyspnoea [Recovered/Resolved]
  - Periorbital oedema [Recovered/Resolved]
  - Hypotension [Recovered/Resolved]
  - Face oedema [Recovered/Resolved]

NARRATIVE: CASE EVENT DATE: 201608
